FAERS Safety Report 4941117-2 (Version None)
Quarter: 2006Q1

REPORT INFORMATION
  Report Type: 
  Country: None (occurrence: None)
  Receive Date: 20060313
  Receipt Date: 20060308
  Transmission Date: 20060701
  Serious: Yes (Hospitalization)
  Sender: FDA-Public Use
  Company Number: US-GLAXOSMITHKLINE-A0596781A

PATIENT
  Sex: Male

DRUGS (4)
  1. PAXIL [Suspect]
     Indication: SOCIAL PHOBIA
     Dosage: 60MG PER DAY
     Route: 048
     Dates: start: 20010101
  2. PAXIL CR [Suspect]
     Indication: SOCIAL PHOBIA
     Dosage: 50MG PER DAY
     Route: 048
     Dates: start: 20030101
  3. XANAX [Concomitant]
  4. KLONOPIN [Concomitant]

REACTIONS (5)
  - GLOSSODYNIA [None]
  - LOGORRHOEA [None]
  - ORAL INFECTION [None]
  - TONGUE DISORDER [None]
  - TONGUE DRY [None]
